FAERS Safety Report 20477102 (Version 1)
Quarter: 2022Q1

REPORT INFORMATION
  Report Type: Spontaneous
  Country: US (occurrence: US)
  Receive Date: 20220215
  Receipt Date: 20220215
  Transmission Date: 20220424
  Serious: No
  Sender: FDA-Public Use
  Company Number: US-PFIZER INC-202100979954

PATIENT
  Age: 64 Year
  Sex: Female

DRUGS (17)
  1. XELJANZ XR [Suspect]
     Active Substance: TOFACITINIB CITRATE
     Dosage: 11 MG, DAILY
     Route: 048
  2. MELOXICAM [Concomitant]
     Active Substance: MELOXICAM
  3. HYDROCHLOROTHIAZIDE\TRIAMTERENE [Concomitant]
     Active Substance: HYDROCHLOROTHIAZIDE\TRIAMTERENE
  4. SYNJARDY XR [Concomitant]
     Active Substance: EMPAGLIFLOZIN\METFORMIN HYDROCHLORIDE
  5. LORATADINE [Concomitant]
     Active Substance: LORATADINE
  6. METHOTREXATE [Concomitant]
     Active Substance: METHOTREXATE
  7. CALTRATE WITH VITAMIN D [Concomitant]
     Active Substance: CALCIUM CARBONATE\CHOLECALCIFEROL
  8. ALBUTEROL SULFATE [Concomitant]
     Active Substance: ALBUTEROL SULFATE
  9. LIPITOR [Concomitant]
     Active Substance: ATORVASTATIN CALCIUM
  10. CARVEDILOL [Concomitant]
     Active Substance: CARVEDILOL
  11. POTASSIUM [Concomitant]
     Active Substance: POTASSIUM
  12. ANORO ELLIPTA [Concomitant]
     Active Substance: UMECLIDINIUM BROMIDE\VILANTEROL TRIFENATATE
  13. EPINEPHRINE [Concomitant]
     Active Substance: EPINEPHRINE
  14. FOLIC ACID [Concomitant]
     Active Substance: FOLIC ACID
  15. FUROSEMIDE [Concomitant]
     Active Substance: FUROSEMIDE
  16. ISOSORBIDE DINITRATE [Concomitant]
     Active Substance: ISOSORBIDE DINITRATE
  17. VITAMIN C [Concomitant]
     Active Substance: ASCORBIC ACID
     Dosage: UNK

REACTIONS (3)
  - Drug ineffective [Unknown]
  - Asthenia [Unknown]
  - Loss of personal independence in daily activities [Unknown]
